FAERS Safety Report 13988576 (Version 1)
Quarter: 2017Q3

REPORT INFORMATION
  Report Type: Spontaneous
  Country: US (occurrence: US)
  Receive Date: 20170919
  Receipt Date: 20170919
  Transmission Date: 20171128
  Serious: No
  Sender: FDA-Public Use
  Company Number: US-MISSION PHARMACAL COMPANY-2026887

PATIENT
  Age: 60 Year
  Sex: Female

DRUGS (1)
  1. THIOLA [Suspect]
     Active Substance: TIOPRONIN
     Indication: CYSTINURIA
     Route: 065
     Dates: start: 20170211

REACTIONS (3)
  - Abdominal discomfort [Recovered/Resolved]
  - Retching [Recovered/Resolved]
  - Incorrect drug administration rate [Recovering/Resolving]
